FAERS Safety Report 21954992 (Version 2)
Quarter: 2023Q4

REPORT INFORMATION
  Report Type: Report from Study
  Country: JP (occurrence: JP)
  Receive Date: 20230206
  Receipt Date: 20231011
  Transmission Date: 20240110
  Serious: Yes (Death)
  Sender: FDA-Public Use
  Company Number: JP-JNJFOC-20230206971

PATIENT
  Age: 83 Year
  Sex: Female
  Weight: 37.8 kg

DRUGS (9)
  1. PALIPERIDONE PALMITATE [Suspect]
     Active Substance: PALIPERIDONE PALMITATE
     Indication: Schizophrenia
     Dosage: LEFT GLUTEAL MUSCLE
     Route: 030
     Dates: start: 20221028, end: 20221028
  2. PALIPERIDONE PALMITATE [Suspect]
     Active Substance: PALIPERIDONE PALMITATE
  3. PALIPERIDONE PALMITATE [Suspect]
     Active Substance: PALIPERIDONE PALMITATE
  4. PALIPERIDONE PALMITATE [Concomitant]
     Active Substance: PALIPERIDONE PALMITATE
     Indication: Schizophrenia
     Route: 030
     Dates: start: 20220708, end: 20220708
  5. PALIPERIDONE PALMITATE [Concomitant]
     Active Substance: PALIPERIDONE PALMITATE
     Route: 030
     Dates: start: 20220805, end: 20220805
  6. PALIPERIDONE PALMITATE [Concomitant]
     Active Substance: PALIPERIDONE PALMITATE
     Route: 030
     Dates: start: 20220902, end: 20220902
  7. PALIPERIDONE PALMITATE [Concomitant]
     Active Substance: PALIPERIDONE PALMITATE
     Route: 030
     Dates: start: 20220930, end: 20220930
  8. REMDESIVIR [Concomitant]
     Active Substance: REMDESIVIR
     Indication: COVID-19
     Route: 065
     Dates: start: 20221207, end: 20221207
  9. REMDESIVIR [Concomitant]
     Active Substance: REMDESIVIR
     Route: 065
     Dates: start: 20221208, end: 20221216

REACTIONS (1)
  - COVID-19 [Fatal]

NARRATIVE: CASE EVENT DATE: 20221207
